FAERS Safety Report 8212994 (Version 3)
Quarter: 2014Q1

REPORT INFORMATION
  Report Type: Spontaneous
  Country: US (occurrence: US)
  Receive Date: 20111030
  Receipt Date: 20140226
  Transmission Date: 20141002
  Serious: No
  Sender: FDA-Public Use
  Company Number: US-AMGEN-USASP2011014765

PATIENT
  Age: 68 Year
  Sex: Female

DRUGS (2)
  1. ENBREL [Suspect]
     Indication: PSORIASIS
     Dosage: 50 MG, QWK
     Route: 065
     Dates: start: 20040101, end: 2013
  2. HUMIRA [Concomitant]
     Dosage: UNK

REACTIONS (9)
  - Renal disorder [Recovered/Resolved]
  - Vomiting [Unknown]
  - Pain [Recovered/Resolved]
  - Respiratory tract congestion [Not Recovered/Not Resolved]
  - Liver function test abnormal [Not Recovered/Not Resolved]
  - Hepatic steatosis [Not Recovered/Not Resolved]
  - Drug ineffective [Unknown]
  - Nasopharyngitis [Not Recovered/Not Resolved]
  - Psoriasis [Not Recovered/Not Resolved]
